FAERS Safety Report 5673785-4 (Version None)
Quarter: 2008Q1

REPORT INFORMATION
  Report Type: 
  Country: None (occurrence: None)
  Receive Date: 20080319
  Receipt Date: 20080307
  Transmission Date: 20080703
  Serious: Yes (Death, Life-Threatening, Hospitalization, Disabling, Other)
  Sender: FDA-Public Use
  Company Number: GB-PFIZER INC-2008022028

PATIENT
  Age: 71 Year
  Sex: Female
  Weight: 73 kg

DRUGS (8)
  1. CHAMPIX [Suspect]
     Indication: SMOKING CESSATION THERAPY
     Route: 048
     Dates: start: 20080211, end: 20080225
  2. BENDROFLUMETHIAZIDE [Concomitant]
  3. FELODIPINE [Concomitant]
  4. OLMESARTAN MEDOXOMIL [Concomitant]
  5. PARACETAMOL [Concomitant]
  6. SERETIDE [Concomitant]
  7. SIMVASTATIN [Concomitant]
  8. TIOTROPIUM BROMIDE [Concomitant]

REACTIONS (3)
  - DYSPNOEA [None]
  - HAEMOPTYSIS [None]
  - PULMONARY EMBOLISM [None]
